FAERS Safety Report 7737244-7 (Version None)
Quarter: 2011Q3

REPORT INFORMATION
  Report Type: 
  Country: None (occurrence: None)
  Receive Date: 20110908
  Receipt Date: 20110824
  Transmission Date: 20111222
  Serious: Yes (Death, Hospitalization, Other)
  Sender: FDA-Public Use
  Company Number: TR-JNJFOC-20110900441

PATIENT
  Age: 6 Month
  Sex: Male

DRUGS (13)
  1. MIDAZOLAM HCL [Suspect]
     Dosage: (0.5 MG/KG BOLUS AND THEN START 2UG/KG/MIN, MAXIMUM 24 UG/KG/MIN)
     Route: 042
  2. PROPOFOL [Suspect]
     Indication: STATUS EPILEPTICUS
     Dosage: (1-2MG/KG BOLUS 1-15MG/KG/H)
     Route: 042
  3. TOPIRAMATE [Suspect]
     Dosage: LOADING DOSE, NASOGASTRIC ROUTE OF DRUG ADMINISTRATION
     Route: 050
  4. THIOPENTAL SODIUM [Suspect]
     Indication: STATUS EPILEPTICUS
     Dosage: 5 MG/KG IV BOLUS 3-5 MG/KG/H)
     Route: 042
  5. MIDAZOLAM HCL [Suspect]
     Indication: STATUS EPILEPTICUS
     Dosage: 0.1 MG/KG, MAXIMUM 5MG
     Route: 002
  6. TOPIRAMATE [Suspect]
     Route: 050
  7. KETAMINE HCL [Suspect]
     Indication: STATUS EPILEPTICUS
     Route: 065
  8. TOPIRAMATE [Suspect]
     Indication: STATUS EPILEPTICUS
     Route: 050
  9. TOPIRAMATE [Suspect]
     Route: 050
  10. PHENOBARBITAL TAB [Suspect]
     Indication: STATUS EPILEPTICUS
     Dosage: 15-20 MG/KG MAXIMUM 1G
     Route: 042
  11. PHENYTOIN [Suspect]
     Indication: STATUS EPILEPTICUS
     Dosage: 15-20 MG/KG MAXIMUM 1G)
     Route: 042
  12. LEVETIRACETAM [Suspect]
     Indication: CONVULSION
     Dosage: 1-2 MG/KG BOLUS, 1-15 MG/KG/H
     Route: 065
  13. PHENOBARBITAL TAB [Suspect]
     Indication: CONVULSION
     Dosage: 15-20 MG/KG MAXIMUM 1G
     Route: 065

REACTIONS (4)
  - INCORRECT ROUTE OF DRUG ADMINISTRATION [None]
  - DRUG INEFFECTIVE [None]
  - METABOLIC ACIDOSIS [None]
  - DRUG ADMINISTERED TO PATIENT OF INAPPROPRIATE AGE [None]
